FAERS Safety Report 6853811-7 (Version None)
Quarter: 2010Q3

REPORT INFORMATION
  Report Type: 
  Country: None (occurrence: None)
  Receive Date: 20100717
  Receipt Date: 20071218
  Transmission Date: 20110219
  Serious: No
  Sender: FDA-Public Use
  Company Number: US-PFIZER INC-2007107332

PATIENT
  Sex: Female
  Weight: 59 kg

DRUGS (7)
  1. CHANTIX [Suspect]
     Indication: SMOKING CESSATION THERAPY
     Dates: start: 20071201
  2. OXYCONTIN [Concomitant]
  3. OXYCODONE HCL [Concomitant]
  4. SOMA [Concomitant]
  5. PIROXICAM [Concomitant]
  6. XANAX [Concomitant]
  7. NEURONTIN [Concomitant]
     Indication: CONVULSION

REACTIONS (3)
  - BLOOD PRESSURE INCREASED [None]
  - HEADACHE [None]
  - VOMITING [None]
